FAERS Safety Report 6568373-1 (Version None)
Quarter: 2010Q1

REPORT INFORMATION
  Report Type: 
  Country: None (occurrence: None)
  Receive Date: 20100129
  Receipt Date: 20100121
  Transmission Date: 20100710
  Serious: Yes (Other)
  Sender: FDA-Public Use
  Company Number: 2009US004200

PATIENT
  Age: 64 Year
  Sex: Male
  Weight: 103 kg

DRUGS (18)
  1. LEXISCAN [Suspect]
     Indication: SCAN MYOCARDIAL PERFUSION
     Dosage: IV NOS
     Route: 042
     Dates: start: 20091113, end: 20091113
  2. ALBUTEROL SULFATE (SALBUTAMOL) [Concomitant]
  3. ASPIRIN [Concomitant]
  4. BACTRIM [Concomitant]
  5. BETAPACE [Concomitant]
  6. COUMADIN [Concomitant]
  7. DIGOXIN [Concomitant]
  8. FLAXSEED OIL (LINUM USITATISSIMUM SEED OIL) [Concomitant]
  9. LASIX [Concomitant]
  10. LISINOPRIL [Concomitant]
  11. NEURONTIN [Concomitant]
  12. NITROSTAT [Concomitant]
  13. OMEPRAZOLE (OMEPRAZOLE) TABLET [Concomitant]
  14. POTASSIUM CHLORIDE [Concomitant]
  15. PROSCAR [Concomitant]
  16. SENOKOT [Concomitant]
  17. TERAZOSIN HYDROCHLORIDE [Concomitant]
  18. ZOCOR [Concomitant]

REACTIONS (4)
  - APHASIA [None]
  - FACIAL PALSY [None]
  - TACHYCARDIA [None]
  - TONGUE PARALYSIS [None]
